FAERS Safety Report 10169956 (Version 1)
Quarter: 2014Q2

REPORT INFORMATION
  Report Type: Spontaneous
  Country: US (occurrence: US)
  Receive Date: 20140513
  Receipt Date: 20140513
  Transmission Date: 20141212
  Serious: Yes (Other)
  Sender: FDA-Public Use
  Company Number: US-BRISTOL-MYERS SQUIBB COMPANY-20706248

PATIENT
  Age: 61 Year
  Sex: Female
  Weight: 57.59 kg

DRUGS (6)
  1. ABILIFY TABS 2 MG [Suspect]
     Indication: BIPOLAR DISORDER
  2. LAMOTRIGINE [Concomitant]
  3. KLONOPIN [Concomitant]
  4. TRAZODONE HCL [Concomitant]
     Dosage: QHS FOR SLEEP
  5. LINSEED [Concomitant]
     Indication: IRRITABLE BOWEL SYNDROME
  6. LINSEED [Concomitant]
     Indication: CONSTIPATION

REACTIONS (5)
  - Depression [Unknown]
  - Suicidal ideation [Unknown]
  - Breast cancer [Unknown]
  - Stress [Unknown]
  - Weight decreased [Unknown]
